FAERS Safety Report 5600790-6 (Version None)
Quarter: 2008Q1

REPORT INFORMATION
  Report Type: 
  Country: None (occurrence: None)
  Receive Date: 20080123
  Receipt Date: 20080114
  Transmission Date: 20080703
  Serious: Yes (Death, Other)
  Sender: FDA-Public Use
  Company Number: AU-PFIZER INC-2007099541

PATIENT
  Sex: Female
  Weight: 64.3 kg

DRUGS (3)
  1. SUTENT [Suspect]
     Indication: RENAL CELL CARCINOMA
     Route: 048
  2. SUTENT [Suspect]
     Indication: METASTATIC RENAL CELL CARCINOMA
  3. OXYCONTIN [Concomitant]
     Route: 048

REACTIONS (6)
  - DEATH [None]
  - DISEASE PROGRESSION [None]
  - METASTASES TO BONE [None]
  - NAUSEA [None]
  - RENAL CELL CARCINOMA [None]
  - VOMITING [None]
